FAERS Safety Report 20278608 (Version 3)
Quarter: 2022Q1

REPORT INFORMATION
  Report Type: Spontaneous
  Country: US (occurrence: US)
  Receive Date: 20220103
  Receipt Date: 20220121
  Transmission Date: 20220423
  Serious: No
  Sender: FDA-Public Use
  Company Number: US-AMGEN-USASP2021203637

PATIENT
  Age: 69 Year
  Sex: Male
  Weight: 116 kg

DRUGS (2)
  1. NEULASTA [Suspect]
     Active Substance: PEGFILGRASTIM
     Indication: Neutropenia
     Dosage: UNK
     Route: 058
  2. NEULASTA [Suspect]
     Active Substance: PEGFILGRASTIM
     Dosage: UNK
     Route: 058

REACTIONS (3)
  - Unintentional medical device removal [Unknown]
  - Device adhesion issue [Unknown]
  - Device difficult to use [Unknown]

NARRATIVE: CASE EVENT DATE: 20211220
